FAERS Safety Report 7880075-8 (Version None)
Quarter: 2011Q4

REPORT INFORMATION
  Report Type: 
  Country: None (occurrence: None)
  Receive Date: 20111101
  Receipt Date: 20111025
  Transmission Date: 20120403
  Serious: Yes (Other)
  Sender: FDA-Public Use
  Company Number: MX-BAYER-2011-035819

PATIENT
  Age: 75 Year
  Sex: Female
  Weight: 71 kg

DRUGS (14)
  1. SORAFENIB (RAF KINASE INHIBITOR) [Suspect]
     Indication: HEPATIC NEOPLASM MALIGNANT
     Dosage: 400 MG, BID
     Route: 048
     Dates: start: 20110222
  2. LINIFANIB [Suspect]
     Indication: HEPATIC NEOPLASM MALIGNANT
  3. TOCOPHEROL ACETATE [Concomitant]
     Indication: PRURITUS
     Dosage: 400 MG, QD
     Dates: start: 20110201
  4. SPIRONOLACTONE [Concomitant]
     Dosage: 50 MG, QD
     Dates: start: 20110318
  5. LEVOTHYROXINE SODIUM [Concomitant]
     Indication: HYPOTHYROIDISM
     Dosage: 75 MG, QD
     Dates: start: 20110201
  6. PROPRANOLOL [Concomitant]
     Dosage: 20 MG, QD
     Dates: start: 20110318
  7. SPIRONOLACTONE [Concomitant]
     Indication: HYPERTENSION
     Dosage: 100 MG, QD
     Dates: start: 20110201, end: 20110317
  8. PROPRANOLOL [Concomitant]
     Indication: HYPERTENSION
     Dosage: 40 MG, QD
     Dates: start: 20110201, end: 20110317
  9. CHOLESTYRAMINE [Concomitant]
     Indication: PRURITUS
     Dosage: 4 G, QD
     Dates: start: 20101216, end: 20110317
  10. JANUMET [Concomitant]
     Indication: DIABETES MELLITUS
     Dosage: 100 MG / 1700 MG
     Dates: start: 20090101
  11. LOSARTAN POTASSIUM [Concomitant]
     Indication: HYPERTENSION
     Dosage: 50 MG, QD
     Dates: start: 20110201
  12. ADEMETIONINE [Concomitant]
     Indication: PROPHYLAXIS
     Dosage: 100 MG, QD
     Dates: start: 20101111, end: 20110317
  13. FUROSEMIDE [Concomitant]
     Indication: HYPERTENSION
     Dosage: 40 MG, QD
     Dates: start: 20110201, end: 20110317
  14. FUROSEMIDE [Concomitant]
     Dosage: 20 MG, QD
     Dates: start: 20110318

REACTIONS (1)
  - HYPERURICAEMIA [None]
